FAERS Safety Report 9728401 (Version 2)
Quarter: 2013Q4

REPORT INFORMATION
  Report Type: Spontaneous
  Country: GB (occurrence: GB)
  Receive Date: 20131204
  Receipt Date: 20131204
  Transmission Date: 20140711
  Serious: Yes (Other)
  Sender: FDA-Public Use
  Company Number: GB-ASTELLAS-2013EU009067

PATIENT
  Age: 56 Year
  Sex: Female

DRUGS (2)
  1. BETMIGA [Suspect]
     Indication: MIXED INCONTINENCE
     Dosage: 50 MG, UNKNOWN/D
     Route: 048
     Dates: start: 20131003, end: 20131023
  2. DIHYDROCODEINE [Concomitant]
     Indication: PROCEDURAL PAIN
     Dosage: UNK
     Route: 048
     Dates: start: 20131003, end: 20131010

REACTIONS (4)
  - Dry mouth [Recovered/Resolved]
  - Palpitations [Recovered/Resolved]
  - Somnolence [Recovered/Resolved]
  - Fatigue [Unknown]
